FAERS Safety Report 10233742 (Version 1)
Quarter: 2014Q2

REPORT INFORMATION
  Report Type: Spontaneous
  Country: US (occurrence: US)
  Receive Date: 20140612
  Receipt Date: 20140612
  Transmission Date: 20141212
  Serious: Yes (Other)
  Sender: FDA-Public Use
  Company Number: US-JNJFOC-20140602836

PATIENT
  Age: 26 Year
  Sex: Male
  Weight: 124.74 kg

DRUGS (10)
  1. XARELTO [Suspect]
     Indication: PULMONARY EMBOLISM
     Route: 048
     Dates: start: 20140311
  2. METOPROLOL [Suspect]
     Indication: HEART RATE INCREASED
     Route: 065
     Dates: start: 2014, end: 2014
  3. REMICADE [Concomitant]
     Indication: ARTHRITIS
     Dosage: MONTHLY DOSE
     Route: 065
  4. SULFASALAZINE [Concomitant]
     Indication: PRODUCT USED FOR UNKNOWN INDICATION
     Dosage: MONTHLY DOSE
     Route: 048
     Dates: start: 201311
  5. VITAMIN D [Concomitant]
     Indication: PRODUCT USED FOR UNKNOWN INDICATION
     Dosage: MONTHLY DOSE
     Route: 048
  6. VENLAFAXINE [Concomitant]
     Indication: ANXIETY
     Dosage: MONTHLY DOSE
     Route: 048
  7. METFORMIN [Concomitant]
     Indication: DIABETES MELLITUS
     Dosage: MONTHLY DOSE
     Route: 048
  8. HYDROCODONE [Concomitant]
     Indication: PAIN
     Dosage: MONTHLY DOSE
     Route: 048
  9. CLONAZEPAM [Concomitant]
     Indication: PANIC ATTACK
     Dosage: MONTHLY DOSE
     Route: 048
     Dates: start: 2004
  10. CINRYZE [Concomitant]
     Indication: HEREDITARY ANGIOEDEMA
     Dosage: MONTHLY DOSE
     Route: 065
     Dates: start: 2010

REACTIONS (2)
  - Hereditary angioedema [Recovered/Resolved]
  - Incorrect dose administered [Unknown]
